FAERS Safety Report 8463294-1 (Version None)
Quarter: 2012Q2

REPORT INFORMATION
  Report Type: 
  Country: None (occurrence: None)
  Receive Date: 20120625
  Receipt Date: 20120619
  Transmission Date: 20120825
  Serious: Yes (Hospitalization)
  Sender: FDA-Public Use
  Company Number: US-ACTELION-A-NJ2012-67657

PATIENT

DRUGS (3)
  1. ADCIRCA [Concomitant]
  2. VENTAVIS [Suspect]
     Dosage: 3 TO 6 TIMES DAILY
     Route: 055
  3. VENTAVIS [Suspect]
     Indication: PULMONARY ARTERIAL HYPERTENSION
     Dosage: UNK
     Route: 055
     Dates: start: 20101210

REACTIONS (4)
  - RIB FRACTURE [None]
  - CLAVICLE FRACTURE [None]
  - GASTROINTESTINAL INFECTION [None]
  - TRAUMATIC LUNG INJURY [None]
